FAERS Safety Report 8585002-6 (Version None)
Quarter: 2012Q3

REPORT INFORMATION
  Report Type: 
  Country: None (occurrence: None)
  Receive Date: 20120810
  Receipt Date: 20120807
  Transmission Date: 20120928
  Serious: Yes (Other)
  Sender: FDA-Public Use
  Company Number: US-PFIZER INC-2012192584

PATIENT
  Sex: Female

DRUGS (3)
  1. PRISTIQ [Suspect]
     Dosage: UNK
     Dates: start: 20120806
  2. PRISTIQ [Suspect]
     Dosage: 50 MG, UNK
     Dates: start: 20120101, end: 20120101
  3. LIPITOR [Suspect]
     Dosage: UNK

REACTIONS (10)
  - ANGER [None]
  - DRUG INEFFECTIVE [None]
  - INFLUENZA LIKE ILLNESS [None]
  - IRRITABILITY [None]
  - SOMNOLENCE [None]
  - DEPRESSED MOOD [None]
  - WITHDRAWAL SYNDROME [None]
  - DISORIENTATION [None]
  - SUICIDAL IDEATION [None]
  - POOR QUALITY DRUG ADMINISTERED [None]
